FAERS Safety Report 25028902 (Version 1)
Quarter: 2025Q1

REPORT INFORMATION
  Report Type: Spontaneous
  Country: CN (occurrence: CN)
  Receive Date: 20250302
  Receipt Date: 20250302
  Transmission Date: 20250409
  Serious: Yes (Hospitalization, Other)
  Sender: ABBVIE
  Company Number: CN-ABBVIE-6151119

PATIENT
  Age: 84 Year
  Sex: Male
  Weight: 59 kg

DRUGS (4)
  1. VENETOCLAX [Suspect]
     Active Substance: VENETOCLAX
     Indication: Acute myeloid leukaemia
     Dosage: 200 MG
     Route: 048
     Dates: start: 20241127, end: 20241203
  2. VENETOCLAX [Suspect]
     Active Substance: VENETOCLAX
     Indication: Acute myeloid leukaemia
     Dosage: 200 MG
     Route: 048
     Dates: start: 20241023
  3. AZACITIDINE [Suspect]
     Active Substance: AZACITIDINE
     Indication: Acute myeloid leukaemia
     Dosage: AZACITIDINE FOR INJECTION 100 MG
     Route: 058
     Dates: start: 20241127, end: 20241203
  4. AZACITIDINE [Suspect]
     Active Substance: AZACITIDINE
     Indication: Acute myeloid leukaemia
     Dosage: LAST ADMIN DATE- 2024, AZACITIDINE FOR INJECTION 100 MG
     Route: 058
     Dates: start: 20241023

REACTIONS (5)
  - White blood cell count decreased [Recovering/Resolving]
  - Neutrophil count decreased [Recovering/Resolving]
  - Platelet count decreased [Recovering/Resolving]
  - Pyrexia [Unknown]
  - Granulocytopenia [Unknown]

NARRATIVE: CASE EVENT DATE: 20241028
